FAERS Safety Report 4948915-X (Version None)
Quarter: 2006Q1

REPORT INFORMATION
  Report Type: 
  Country: None (occurrence: None)
  Receive Date: 20060321
  Receipt Date: 20060310
  Transmission Date: 20060701
  Serious: Yes (Hospitalization)
  Sender: FDA-Public Use
  Company Number: PHHO2006GR04095

PATIENT
  Age: 77 Year
  Sex: Male
  Weight: 78 kg

DRUGS (2)
  1. XATRAL [Concomitant]
     Route: 048
     Dates: start: 20040108
  2. ICL670A [Suspect]
     Indication: BLOOD IRON INCREASED
     Dosage: 1500 MG, QD
     Route: 048
     Dates: start: 20060215

REACTIONS (2)
  - CONCOMITANT DISEASE PROGRESSION [None]
  - HAEMATOCRIT DECREASED [None]
